FAERS Safety Report 5147701-8 (Version None)
Quarter: 2006Q4

REPORT INFORMATION
  Report Type: 
  Country: None (occurrence: None)
  Receive Date: 20061110
  Receipt Date: 20061102
  Transmission Date: 20070319
  Serious: Yes (Other)
  Sender: FDA-Public Use
  Company Number: US-BAYER-200614547BCC

PATIENT
  Age: 54 Year
  Sex: Female
  Weight: 95 kg

DRUGS (4)
  1. ALKA SELTZER PLUS EFFERVESCENT COLD [Suspect]
     Indication: DRUG USE FOR UNKNOWN INDICATION
     Route: 048
     Dates: start: 20061012
  2. DEPAKOTE [Concomitant]
     Route: 048
  3. TOPAMAX [Concomitant]
  4. ABILIFY [Concomitant]
     Route: 048

REACTIONS (4)
  - DEAFNESS [None]
  - EAR DISCOMFORT [None]
  - EAR PAIN [None]
  - OTORRHOEA [None]
